FAERS Safety Report 13313361 (Version 1)
Quarter: 2017Q1

REPORT INFORMATION
  Report Type: Spontaneous
  Country: US (occurrence: US)
  Receive Date: 20170309
  Receipt Date: 20170309
  Transmission Date: 20170428
  Serious: No
  Sender: FDA-Public Use
  Company Number: US-TARO-2017TAR00090

PATIENT
  Sex: Female

DRUGS (1)
  1. FLUOCINOLONE ACETONIDE TOPICAL OIL, 0.01 % [Suspect]
     Active Substance: FLUOCINOLONE ACETONIDE

REACTIONS (2)
  - Seborrhoea [Not Recovered/Not Resolved]
  - Hair disorder [Not Recovered/Not Resolved]
